FAERS Safety Report 18069108 (Version 1)
Quarter: 2020Q3

REPORT INFORMATION
  Report Type: Spontaneous
  Country: SI (occurrence: SI)
  Receive Date: 20200725
  Receipt Date: 20200725
  Transmission Date: 20201103
  Serious: Yes (Life-Threatening, Hospitalization)
  Sender: FDA-Public Use
  Company Number: SI-ACCORD-192760

PATIENT
  Age: 51 Year
  Sex: Male

DRUGS (15)
  1. DEXAMETHASONE KRKA [Suspect]
     Active Substance: DEXAMETHASONE
     Indication: B-CELL LYMPHOMA
     Dosage: 40MG/24H FROM THE 1.TO 4. DAY, STRENGTH: 40 MG
     Route: 042
     Dates: start: 20200616, end: 20200619
  2. VALTREX [Concomitant]
     Active Substance: VALACYCLOVIR HYDROCHLORIDE
     Dosage: 2X1
  3. SULFAMETHOXAZOLE/TRIMETHOPRIM [Concomitant]
     Active Substance: SULFAMETHOXAZOLE\TRIMETHOPRIM
     Dosage: 1MG/KG
  4. CALCIUM CARBONATE. [Concomitant]
     Active Substance: CALCIUM CARBONATE
     Dosage: 2X21
  5. CISPLATIN ACCORD [Suspect]
     Active Substance: CISPLATIN
     Indication: B-CELL LYMPHOMA
     Dosage: STRENGTH:1 MG/ML
     Route: 042
     Dates: start: 20200616, end: 20200619
  6. ALLOPURINOL. [Concomitant]
     Active Substance: ALLOPURINOL
  7. PORTALAC [Concomitant]
     Active Substance: LACTULOSE
  8. CODEINE [Concomitant]
     Active Substance: CODEINE
     Dosage: 2X1
  9. PLIVIT D3 [Concomitant]
     Active Substance: CHOLECALCIFEROL
  10. HYDROCORTISONE. [Concomitant]
     Active Substance: HYDROCORTISONE
     Dosage: 10+5+5
  11. REGLAN [Concomitant]
     Active Substance: METOCLOPRAMIDE HYDROCHLORIDE
  12. FRAGMIN [Concomitant]
     Active Substance: DALTEPARIN SODIUM
  13. CYTARABINE ACCORD [Suspect]
     Active Substance: CYTARABINE
     Indication: B-CELL LYMPHOMA
     Dosage: 3880 MG/12 HOURS THE 2. DAY
     Route: 042
     Dates: start: 20200616, end: 20200619
  14. NEULASTA [Concomitant]
     Active Substance: PEGFILGRASTIM
  15. LEKADOL [Concomitant]
     Active Substance: ACETAMINOPHEN

REACTIONS (4)
  - Tumour lysis syndrome [Unknown]
  - Acute kidney injury [Unknown]
  - Neutropenia [Unknown]
  - Thrombocytopenia [Unknown]

NARRATIVE: CASE EVENT DATE: 20200619
